FAERS Safety Report 4869604-6 (Version None)
Quarter: 2005Q4

REPORT INFORMATION
  Report Type: 
  Country: None (occurrence: None)
  Receive Date: 20051227
  Receipt Date: 20050901
  Transmission Date: 20060501
  Serious: Yes (Hospitalization)
  Sender: FDA-Public Use
  Company Number: 2005BH001540

PATIENT
  Age: 64 Year
  Sex: Male
  Weight: 57 kg

DRUGS (13)
  1. EXTRANEAL [Suspect]
     Indication: RENAL FAILURE CHRONIC
     Dosage: 2000 ML; EVERY DAY; IP
     Route: 033
     Dates: start: 20050719
  2. DIANEAL PD2 ULTRABAG [Concomitant]
  3. LSIX [Concomitant]
  4. FUROSEMIDE [Concomitant]
  5. DIART [Concomitant]
  6. DIGOXIN [Concomitant]
  7. VALSARTAN [Concomitant]
  8. NICHISTATE [Concomitant]
  9. MUCOSTA [Concomitant]
  10. FRANDOL [Concomitant]
  11. OMEPRAL [Concomitant]
  12. CALCIUM CARBONATE [Concomitant]
  13. DIANEAL PD2 ULTRABAG [Concomitant]

REACTIONS (7)
  - DRUG INTERACTION [None]
  - GENERALISED OEDEMA [None]
  - HYPONATRAEMIA [None]
  - MOTION SICKNESS [None]
  - POSTOPERATIVE WOUND INFECTION [None]
  - REFLUX OESOPHAGITIS [None]
  - THERAPY NON-RESPONDER [None]
